FAERS Safety Report 16991159 (Version 1)
Quarter: 2019Q4

REPORT INFORMATION
  Report Type: Spontaneous
  Country: US (occurrence: US)
  Receive Date: 20190920
  Receipt Date: 20190920
  Transmission Date: 20200122
  Serious: No
  Sender: FDA-Public Use
  Company Number: None

PATIENT
  Age: 26 Year
  Sex: Female

DRUGS (1)
  1. TECFIDERA [Suspect]
     Active Substance: DIMETHYL FUMARATE
     Indication: MULTIPLE SCLEROSIS
     Route: 048
     Dates: start: 20190125

REACTIONS (4)
  - Insurance issue [None]
  - Frustration tolerance decreased [None]
  - Anger [None]
  - Suicidal ideation [None]

NARRATIVE: CASE EVENT DATE: 20190918
